FAERS Safety Report 7183847-0 (Version None)
Quarter: 2010Q4

REPORT INFORMATION
  Report Type: 
  Country: None (occurrence: None)
  Receive Date: 20101222
  Receipt Date: 20101213
  Transmission Date: 20110411
  Serious: Yes (Hospitalization)
  Sender: FDA-Public Use
  Company Number: TR-JNJFOC-20101205453

PATIENT
  Age: 24 Year
  Sex: Female
  Weight: 75 kg

DRUGS (2)
  1. INFLIXIMAB, RECOMBINANT [Suspect]
     Indication: HIDRADENITIS
     Route: 042
  2. ISOTRETINOIN [Concomitant]

REACTIONS (4)
  - DYSPNOEA [None]
  - EYE OEDEMA [None]
  - OEDEMA MOUTH [None]
  - TACHYCARDIA [None]
